FAERS Safety Report 10246725 (Version 1)
Quarter: 2014Q2

REPORT INFORMATION
  Report Type: Spontaneous
  Country: GB (occurrence: GB)
  Receive Date: 20140619
  Receipt Date: 20140619
  Transmission Date: 20141212
  Serious: Yes (Other)
  Sender: FDA-Public Use
  Company Number: GB-AMGEN INC.-GBRSP2014045604

PATIENT
  Age: 58 Year
  Sex: Male
  Weight: 82.2 kg

DRUGS (6)
  1. ENBREL [Suspect]
     Indication: RHEUMATOID ARTHRITIS
     Dosage: 50 MG, WEEKLY
     Route: 058
     Dates: start: 20140109, end: 20140403
  2. CALCIUM + VIT D [Concomitant]
     Dosage: UNK
  3. LEFLUNOMIDE [Concomitant]
     Dosage: 20 MG, WEEKLY
  4. NAPROXEN [Concomitant]
     Dosage: 250 MG, UNK
  5. PAROXETINE [Concomitant]
     Dosage: UNK
  6. TAMSULOSIN [Concomitant]
     Dosage: UNK

REACTIONS (2)
  - Bladder transitional cell carcinoma stage II [Not Recovered/Not Resolved]
  - Haematuria [Unknown]
